FAERS Safety Report 21245639 (Version 2)
Quarter: 2023Q1

REPORT INFORMATION
  Report Type: Report from Study
  Country: US (occurrence: US)
  Receive Date: 20220824
  Receipt Date: 20230225
  Transmission Date: 20230417
  Serious: Yes (Other)
  Sender: FDA-Public Use
  Company Number: US-KOREA IPSEN Pharma-2022-23880

PATIENT
  Age: 60 Year
  Sex: Male

DRUGS (3)
  1. SOMATULINE DEPOT [Suspect]
     Active Substance: LANREOTIDE ACETATE
     Indication: Carcinoid tumour of the small bowel
     Dosage: 120MG /0.5ML
     Route: 058
     Dates: start: 20210607
  2. METOPROLOL [Concomitant]
     Active Substance: METOPROLOL
     Indication: Product used for unknown indication
     Route: 065
  3. METOPROLOL [Concomitant]
     Active Substance: METOPROLOL
     Dosage: 0.5 TABLET IN THE MORNING
     Route: 065

REACTIONS (10)
  - Heart rate decreased [Recovering/Resolving]
  - Gastrointestinal disorder [Unknown]
  - Adverse event [Unknown]
  - Off label use [Unknown]
  - Product administration error [Unknown]
  - Injection site pain [Recovered/Resolved]
  - Headache [Recovered/Resolved]
  - Blood chromogranin A increased [Recovered/Resolved]
  - Heart rate decreased [Recovered/Resolved]
  - Inappropriate schedule of product administration [Unknown]

NARRATIVE: CASE EVENT DATE: 20211101
